FAERS Safety Report 11248272 (Version 1)
Quarter: 2015Q3

REPORT INFORMATION
  Report Type: Spontaneous
  Country: US (occurrence: US)
  Receive Date: 20150708
  Receipt Date: 20150708
  Transmission Date: 20151125
  Serious: No
  Sender: FDA-Public Use
  Company Number: US-ELI_LILLY_AND_COMPANY-US200802001323

PATIENT
  Sex: Female

DRUGS (4)
  1. FLUOXETINE HYDROCHLORIDE. [Suspect]
     Active Substance: FLUOXETINE HYDROCHLORIDE
     Dosage: 1 DF, UNKNOWN
  2. PROZAC [Suspect]
     Active Substance: FLUOXETINE HYDROCHLORIDE
     Indication: DEPRESSION
     Dosage: 20 MG, 4/D
  3. PROZAC [Suspect]
     Active Substance: FLUOXETINE HYDROCHLORIDE
     Dosage: 100 MG, UNK
     Dates: start: 2008
  4. PROZAC [Suspect]
     Active Substance: FLUOXETINE HYDROCHLORIDE
     Dosage: 80 MG, UNK
     Dates: start: 20080208, end: 2008

REACTIONS (6)
  - Drug ineffective [Unknown]
  - Back pain [Unknown]
  - Feeling abnormal [Unknown]
  - Drug ineffective [Unknown]
  - Overdose [Unknown]
  - Tremor [Unknown]

NARRATIVE: CASE EVENT DATE: 2008
